FAERS Safety Report 25544042 (Version 1)
Quarter: 2025Q3

REPORT INFORMATION
  Report Type: Spontaneous
  Country: US (occurrence: None)
  Receive Date: 20250710
  Receipt Date: 20250710
  Transmission Date: 20251020
  Serious: Yes (Life-Threatening, Disabling, Other)
  Sender: FDA-CTU
  Company Number: None

PATIENT
  Age: 43 Year
  Sex: Female
  Weight: 99 kg

DRUGS (2)
  1. FLUOXETINE [Suspect]
     Active Substance: FLUOXETINE HYDROCHLORIDE
     Indication: Anxiety
  2. PAROXETINE [Suspect]
     Active Substance: PAROXETINE

REACTIONS (9)
  - Sexual dysfunction [None]
  - Withdrawal syndrome [None]
  - Genital hypoaesthesia [None]
  - Nipple disorder [None]
  - Quality of life decreased [None]
  - Nerve injury [None]
  - Surgery [None]
  - Angiopathy [None]
  - Blood iron decreased [None]

NARRATIVE: CASE EVENT DATE: 20200408
